FAERS Safety Report 9496311 (Version 1)
Quarter: 2013Q3

REPORT INFORMATION
  Report Type: Spontaneous
  Country: CZ (occurrence: CZ)
  Receive Date: 20130904
  Receipt Date: 20130904
  Transmission Date: 20140515
  Serious: Yes (Hospitalization, Disabling, Other)
  Sender: FDA-Public Use
  Company Number: CZ-JNJFOC-20130813402

PATIENT
  Age: 62 Year
  Sex: Female

DRUGS (7)
  1. DOXORUBICIN HYDROCHLORIDE (CAELYX) [Suspect]
     Indication: OVARIAN CANCER STAGE II
     Route: 042
     Dates: start: 20101214, end: 20130328
  2. VITAMIN D [Concomitant]
     Route: 065
  3. ENELBIN (NAFTIDROFLURYL) [Concomitant]
     Route: 065
  4. BIOMIN H [Concomitant]
     Route: 065
  5. TIMO-COMOD [Concomitant]
     Route: 065
  6. LOKREN [Concomitant]
     Route: 065
  7. SILYMARIN [Concomitant]
     Route: 065

REACTIONS (1)
  - Tongue neoplasm malignant stage unspecified [Not Recovered/Not Resolved]
